FAERS Safety Report 25209771 (Version 2)
Quarter: 2025Q4

REPORT INFORMATION
  Report Type: Spontaneous
  Country: US (occurrence: US)
  Receive Date: 20250417
  Receipt Date: 20251001
  Transmission Date: 20260117
  Serious: No
  Sender: BIOGEN
  Company Number: US-BIOGEN-2025BI01307446

PATIENT
  Age: 39 Year
  Sex: Female

DRUGS (1)
  1. SKYCLARYS [Suspect]
     Active Substance: OMAVELOXOLONE
     Indication: Friedreich^s ataxia
     Route: 050
     Dates: start: 20240919

REACTIONS (5)
  - Glycosylated haemoglobin increased [Unknown]
  - Blood pressure increased [Unknown]
  - Oedema peripheral [Unknown]
  - Blood cholesterol increased [Unknown]
  - Underdose [Unknown]

NARRATIVE: CASE EVENT DATE: 20240919
